FAERS Safety Report 23718912 (Version 1)
Quarter: 2024Q2

REPORT INFORMATION
  Report Type: Spontaneous
  Country: GB (occurrence: GB)
  Receive Date: 20240408
  Receipt Date: 20240408
  Transmission Date: 20240716
  Serious: Yes (Life-Threatening, Hospitalization, Other)
  Sender: FDA-Public Use
  Company Number: None

PATIENT
  Age: 26 Year
  Sex: Male
  Weight: 78 kg

DRUGS (2)
  1. ESCITALOPRAM [Suspect]
     Active Substance: ESCITALOPRAM OXALATE
     Indication: Depression suicidal
     Dosage: 20MG
     Route: 065
     Dates: start: 20231207, end: 20240313
  2. VENLAFAXINE [Suspect]
     Active Substance: VENLAFAXINE HYDROCHLORIDE
     Indication: Depression suicidal
     Dosage: 75MG,  ACTAVIS GROUP PTC VENLAFAXINE
     Route: 065
     Dates: start: 20240313, end: 20240325

REACTIONS (13)
  - Confusional state [Not Recovered/Not Resolved]
  - Aggression [Not Recovered/Not Resolved]
  - Anger [Not Recovered/Not Resolved]
  - Mydriasis [Not Recovered/Not Resolved]
  - Antisocial personality disorder [Not Recovered/Not Resolved]
  - Emotional poverty [Not Recovered/Not Resolved]
  - Partner stress [Not Recovered/Not Resolved]
  - Aggression [Not Recovered/Not Resolved]
  - Economic problem [Not Recovered/Not Resolved]
  - Hypersexuality [Not Recovered/Not Resolved]
  - High risk sexual behaviour [Not Recovered/Not Resolved]
  - Tremor [Not Recovered/Not Resolved]
  - Impulsive behaviour [Not Recovered/Not Resolved]
